FAERS Safety Report 5806546-3 (Version None)
Quarter: 2008Q3

REPORT INFORMATION
  Report Type: 
  Country: None (occurrence: None)
  Receive Date: 20080710
  Receipt Date: 20080619
  Transmission Date: 20090109
  Serious: No
  Sender: FDA-Public Use
  Company Number: US-BOEHRINGER INGELHEIM GMBH, GERMANY-2008-BP-09577BP

PATIENT
  Sex: Female
  Weight: 54 kg

DRUGS (6)
  1. MIRAPEX [Suspect]
     Indication: FIBROMYALGIA
     Route: 048
     Dates: start: 20060101
  2. MIRAPEX [Suspect]
     Indication: RESTLESS LEGS SYNDROME
  3. INHALERS [Concomitant]
  4. ESTROGEN [Concomitant]
  5. TYLENOL W/ CODEINE NO. 3 [Concomitant]
  6. ELMIRON [Concomitant]
     Indication: BLADDER DISORDER

REACTIONS (5)
  - BONE PAIN [None]
  - DYSKINESIA [None]
  - FOOT DEFORMITY [None]
  - MUSCULOSKELETAL DISCOMFORT [None]
  - SOMNOLENCE [None]
